FAERS Safety Report 16685687 (Version 9)
Quarter: 2021Q2

REPORT INFORMATION
  Report Type: Spontaneous
  Country: US (occurrence: US)
  Receive Date: 20190809
  Receipt Date: 20210604
  Transmission Date: 20210716
  Serious: No
  Sender: FDA-Public Use
  Company Number: US-SA-2019SA212159

PATIENT
  Age: 58 Year
  Sex: Male

DRUGS (3)
  1. HYDROXYZINE HCL [Concomitant]
     Active Substance: HYDROXYZINE HYDROCHLORIDE
  2. PREDNISONE. [Concomitant]
     Active Substance: PREDNISONE
  3. DUPIXENT [Suspect]
     Active Substance: DUPILUMAB
     Indication: DERMATITIS
     Dosage: 300 MG, QOW
     Route: 058
     Dates: start: 2016

REACTIONS (18)
  - Dry mouth [Unknown]
  - Erythema [Unknown]
  - Pruritus [Unknown]
  - Swelling face [Unknown]
  - Dry eye [Not Recovered/Not Resolved]
  - Product dose omission issue [Unknown]
  - Skin disorder [Unknown]
  - Eye swelling [Not Recovered/Not Resolved]
  - Vision blurred [Unknown]
  - Eye irritation [Not Recovered/Not Resolved]
  - Headache [Unknown]
  - Pyrexia [Unknown]
  - Ocular hyperaemia [Unknown]
  - Eye disorder [Unknown]
  - Skin burning sensation [Unknown]
  - Drug ineffective [Unknown]
  - Rash [Unknown]
  - Product use in unapproved indication [Unknown]

NARRATIVE: CASE EVENT DATE: 2016
